FAERS Safety Report 23171808 (Version 2)
Quarter: 2023Q4

REPORT INFORMATION
  Report Type: Spontaneous
  Country: CH (occurrence: None)
  Receive Date: 20231110
  Receipt Date: 20231221
  Transmission Date: 20240110
  Serious: No
  Sender: FDA-Public Use
  Company Number: 2023A254709

PATIENT
  Age: 49 Year
  Sex: Female

DRUGS (1)
  1. BYDUREON [Suspect]
     Active Substance: EXENATIDE

REACTIONS (5)
  - Syringe issue [Unknown]
  - Injection site pruritus [Unknown]
  - Injection site nodule [Unknown]
  - Off label use [Unknown]
  - Device leakage [Unknown]
